FAERS Safety Report 24922139 (Version 5)
Quarter: 2025Q1

REPORT INFORMATION
  Report Type: Report from Study
  Country: CA (occurrence: CA)
  Receive Date: 20250204
  Receipt Date: 20250326
  Transmission Date: 20250409
  Serious: Yes (Hospitalization, Other)
  Sender: ALEXION PHARMACEUTICALS
  Company Number: CA-AstraZeneca-CH-00782131A

PATIENT

DRUGS (2)
  1. ULTOMIRIS [Suspect]
     Active Substance: RAVULIZUMAB-CWVZ
     Indication: Myasthenia gravis
  2. ULTOMIRIS [Suspect]
     Active Substance: RAVULIZUMAB-CWVZ

REACTIONS (11)
  - Pneumonia aspiration [Recovering/Resolving]
  - COVID-19 [Not Recovered/Not Resolved]
  - Pneumonia [Not Recovered/Not Resolved]
  - Cough [Not Recovered/Not Resolved]
  - Chest pain [Not Recovered/Not Resolved]
  - Fatigue [Unknown]
  - Influenza [Not Recovered/Not Resolved]
  - Pulmonary oedema [Unknown]
  - Sputum discoloured [Unknown]
  - Blood potassium decreased [Unknown]
  - Oropharyngitis fungal [Unknown]
